FAERS Safety Report 15880083 (Version 1)
Quarter: 2019Q1

REPORT INFORMATION
  Report Type: Spontaneous
  Country: IT (occurrence: IT)
  Receive Date: 20190128
  Receipt Date: 20190128
  Transmission Date: 20190417
  Serious: Yes (Other)
  Sender: FDA-Public Use
  Company Number: IT-TEVA-2019-IT-1003267

PATIENT
  Age: 57 Year
  Sex: Female

DRUGS (2)
  1. CAMPATH [Suspect]
     Active Substance: ALEMTUZUMAB
     Indication: CHRONIC LYMPHOCYTIC LEUKAEMIA
     Dosage: AS PART OF THE FLUCAM REGIMEN
     Route: 065
  2. FLUDARABINE [Suspect]
     Active Substance: FLUDARABINE PHOSPHATE
     Indication: CHRONIC LYMPHOCYTIC LEUKAEMIA
     Dosage: AS PART OF THE FLUCAM REGIMEN
     Route: 065

REACTIONS (2)
  - Transaminases increased [Recovered/Resolved]
  - Hepatitis B reactivation [Recovered/Resolved]
